FAERS Safety Report 15107088 (Version 9)
Quarter: 2021Q3

REPORT INFORMATION
  Report Type: Report from Study
  Country: JP (occurrence: JP)
  Receive Date: 20180704
  Receipt Date: 20210706
  Transmission Date: 20211014
  Serious: Yes (Life-Threatening, Hospitalization, Other)
  Sender: FDA-Public Use
  Company Number: JP-AMGEN-JPNCT2017096813

PATIENT
  Age: 83 Year
  Sex: Male

DRUGS (36)
  1. DARBEPOETIN ALFA [Suspect]
     Active Substance: DARBEPOETIN ALFA
     Dosage: 240 MICROGRAM, Q4WK
     Route: 058
     Dates: start: 20170321, end: 20170613
  2. DARBEPOETIN ALFA [Suspect]
     Active Substance: DARBEPOETIN ALFA
     Dosage: 240 MICROGRAM, Q2WK
     Route: 058
     Dates: start: 20180424, end: 20180828
  3. DARBEPOETIN ALFA [Suspect]
     Active Substance: DARBEPOETIN ALFA
     Dosage: 240 MICROGRAM, QD
     Route: 058
     Dates: start: 20180918, end: 20180918
  4. DARBEPOETIN ALFA [Suspect]
     Active Substance: DARBEPOETIN ALFA
     Dosage: 240 MICROGRAM, Q4WK
     Route: 058
     Dates: start: 20181225, end: 20190122
  5. MIYA?BM [Concomitant]
     Active Substance: CLOSTRIDIUM BUTYRICUM SPORES STRAIN M-55
     Indication: ENTEROCOLITIS
     Dosage: UNK
     Route: 048
  6. DARBEPOETIN ALFA [Suspect]
     Active Substance: DARBEPOETIN ALFA
     Dosage: 240 MICROGRAM Q5WK
     Route: 058
     Dates: start: 20170905, end: 20171219
  7. DARBEPOETIN ALFA [Suspect]
     Active Substance: DARBEPOETIN ALFA
     Dosage: 240 MICROGRAM, Q4WK
     Route: 058
     Dates: start: 20181106, end: 20181204
  8. URSO [Concomitant]
     Active Substance: URSODIOL
     Indication: BILE DUCT STONE
     Dosage: 300 MILLIGRAM
     Route: 048
     Dates: start: 20160329, end: 20160412
  9. DARBEPOETIN ALFA [Suspect]
     Active Substance: DARBEPOETIN ALFA
     Indication: MYELODYSPLASTIC SYNDROME
     Dosage: 240 MICROGRAM, QD
     Route: 058
     Dates: start: 20160328, end: 20160328
  10. DARBEPOETIN ALFA [Suspect]
     Active Substance: DARBEPOETIN ALFA
     Dosage: 120 MICROGRAM, QD
     Route: 058
     Dates: start: 20181002, end: 20181002
  11. AMLODIPINE [AMLODIPINE BESILATE] [Concomitant]
     Active Substance: AMLODIPINE BESYLATE
     Dosage: 5 MG
     Route: 048
     Dates: start: 20181107
  12. DECADRON [Concomitant]
     Active Substance: DEXAMETHASONE
     Indication: PROSTATE CANCER RECURRENT
  13. DARBEPOETIN ALFA [Suspect]
     Active Substance: DARBEPOETIN ALFA
     Dosage: 240 MICROGRAM, Q4WK
     Route: 058
     Dates: start: 20160517, end: 20161227
  14. DARBEPOETIN ALFA [Suspect]
     Active Substance: DARBEPOETIN ALFA
     Dosage: 240 MICROGRAM, Q4WK
     Route: 058
     Dates: start: 20191029, end: 20191224
  15. LASIX [Concomitant]
     Active Substance: FUROSEMIDE
     Indication: RENAL IMPAIRMENT
     Dosage: UNK
     Route: 048
  16. FEBURIC [Concomitant]
     Active Substance: FEBUXOSTAT
     Dosage: 20 MILLIGRAM
     Route: 048
     Dates: start: 20180508
  17. MICARDIS [Concomitant]
     Active Substance: TELMISARTAN
     Dosage: 40 MG
     Route: 048
     Dates: start: 20190123
  18. DARBEPOETIN ALFA [Suspect]
     Active Substance: DARBEPOETIN ALFA
     Dosage: 240 MICROGRAM, QD
     Route: 058
     Dates: start: 20170718, end: 20170718
  19. DARBEPOETIN ALFA [Suspect]
     Active Substance: DARBEPOETIN ALFA
     Dosage: 240 MICROGRAM, Q4WK
     Route: 058
     Dates: start: 20190212, end: 20190409
  20. DARBEPOETIN ALFA [Suspect]
     Active Substance: DARBEPOETIN ALFA
     Dosage: 240 MICROGRAM, Q4WK
     Route: 058
     Dates: start: 20200128
  21. LASIX [Concomitant]
     Active Substance: FUROSEMIDE
     Dosage: 10 MG
     Route: 048
     Dates: start: 20180619
  22. DECADRON [Concomitant]
     Active Substance: DEXAMETHASONE
     Indication: PROSTATE CANCER
  23. ZOLADEX LA [Concomitant]
     Active Substance: GOSERELIN ACETATE
     Indication: PROSTATE CANCER
     Dosage: 10.8 MG, 1X/3MONTHS
     Route: 065
  24. TAKECAB [Concomitant]
     Active Substance: VONOPRAZAN FUMARATE
     Dosage: 10 MG
     Route: 048
     Dates: start: 20170822
  25. SAWACILLIN [Concomitant]
     Active Substance: AMOXICILLIN
     Indication: THERMAL BURN
     Dosage: 750 MG
     Route: 048
     Dates: start: 20200810, end: 20200812
  26. DARBEPOETIN ALFA [Suspect]
     Active Substance: DARBEPOETIN ALFA
     Dosage: 240 MICROGRAM Q5WK
     Route: 058
     Dates: start: 20190507, end: 20190924
  27. AMLODIPINE [AMLODIPINE BESILATE] [Concomitant]
     Active Substance: AMLODIPINE BESYLATE
     Dosage: 2.5 MG
     Route: 048
     Dates: start: 20180424, end: 20181106
  28. CALONAL [Concomitant]
     Active Substance: ACETAMINOPHEN
     Indication: THERMAL BURN
     Dosage: 1500 MG
     Route: 048
     Dates: start: 20200825, end: 20201027
  29. DARBEPOETIN ALFA [Suspect]
     Active Substance: DARBEPOETIN ALFA
     Dosage: 180 MICROGRAM, Q2WK
     Route: 058
     Dates: start: 20160412, end: 20160426
  30. DARBEPOETIN ALFA [Suspect]
     Active Substance: DARBEPOETIN ALFA
     Dosage: 240 MICROGRAM, QD
     Route: 058
     Dates: start: 20170207, end: 20170207
  31. DARBEPOETIN ALFA [Suspect]
     Active Substance: DARBEPOETIN ALFA
     Dosage: 180 MICROGRAM, QD
     Route: 058
     Dates: start: 20170808, end: 20170808
  32. CRAVIT [Concomitant]
     Active Substance: LEVOFLOXACIN
     Dosage: 500 MG
     Route: 048
     Dates: start: 20170321, end: 20170327
  33. CEFTRIAXONE NA [Concomitant]
     Active Substance: CEFTRIAXONE
     Dosage: 2 G
     Route: 042
     Dates: start: 20180103, end: 20180104
  34. DECADRON [Concomitant]
     Active Substance: DEXAMETHASONE
     Dosage: 0.5 MG
     Route: 048
     Dates: start: 20170822
  35. MIYA?BM [Concomitant]
     Active Substance: CLOSTRIDIUM BUTYRICUM SPORES STRAIN M-55
     Dosage: 3 DF
     Route: 048
     Dates: start: 20200513, end: 20200518
  36. AMITIZA [Concomitant]
     Active Substance: LUBIPROSTONE
     Indication: CONSTIPATION
     Dosage: UNK
     Route: 048
     Dates: start: 20201009, end: 20201028

REACTIONS (13)
  - Pyelonephritis acute [Recovered/Resolved]
  - Hypertension [Recovering/Resolving]
  - White blood cell count increased [Recovered/Resolved]
  - Ureterolithiasis [Recovering/Resolving]
  - Acute kidney injury [Recovered/Resolved with Sequelae]
  - C-reactive protein increased [Recovering/Resolving]
  - Hyperuricaemia [Recovering/Resolving]
  - Hydronephrosis [Recovering/Resolving]
  - Cystitis [Recovered/Resolved]
  - Prostate cancer recurrent [Not Recovered/Not Resolved]
  - Folate deficiency [Recovered/Resolved]
  - Burns third degree [Recovered/Resolved]
  - Enterocolitis viral [Recovered/Resolved]

NARRATIVE: CASE EVENT DATE: 20170321
